FAERS Safety Report 9697802 (Version 1)
Quarter: 2013Q4

REPORT INFORMATION
  Report Type: Spontaneous
  Country: US (occurrence: US)
  Receive Date: 20131120
  Receipt Date: 20131120
  Transmission Date: 20140711
  Serious: No
  Sender: FDA-Public Use
  Company Number: US-PFIZER INC-2013330478

PATIENT
  Age: 52 Year
  Sex: Female
  Weight: 83.9 kg

DRUGS (11)
  1. LYRICA [Suspect]
     Indication: FIBROMYALGIA
     Dosage: 75 MG, 1X/DAY
     Route: 048
     Dates: start: 2012
  2. LYRICA [Suspect]
     Dosage: 150 MG, 1X/DAY
     Route: 048
  3. LYRICA [Suspect]
     Dosage: 75 MG, 1X/DAY
     Route: 048
  4. NEXIUM [Concomitant]
     Indication: GASTRIC DISORDER
     Dosage: 40 MG, 1X/DAY
  5. ADVAIR [Concomitant]
     Indication: ASTHMA
     Dosage: 500/50 MG, 2X/DAY
  6. CYMBALTA [Concomitant]
     Dosage: 30 MG, UNK
  7. SINGULAIR [Concomitant]
     Dosage: UNK
  8. VENTOLINE [Concomitant]
     Dosage: UNK
  9. ALBUTEROL [Concomitant]
     Dosage: UNK
  10. HYDROCODONE [Concomitant]
     Indication: PAIN
     Dosage: 500 MG (1 TO 2 TABLETS), IN A DAY
  11. LEVOTHYROXINE [Concomitant]
     Indication: THYROID DISORDER
     Dosage: 75 UG, 1X/DAY

REACTIONS (6)
  - Drug dispensing error [Unknown]
  - Dizziness [Unknown]
  - Vision blurred [Unknown]
  - Visual impairment [Unknown]
  - Drug ineffective [Unknown]
  - Therapeutic response unexpected [Unknown]
